FAERS Safety Report 5644705-3 (Version None)
Quarter: 2008Q1

REPORT INFORMATION
  Report Type: 
  Country: None (occurrence: None)
  Receive Date: 20080229
  Receipt Date: 20070607
  Transmission Date: 20080703
  Serious: No
  Sender: FDA-Public Use
  Company Number: A0654636A

PATIENT
  Age: 67 Year
  Sex: Male

DRUGS (2)
  1. VALTREX [Suspect]
     Dosage: 1G TWICE PER DAY
     Route: 048
     Dates: start: 20070606
  2. PREDNISONE TAB [Concomitant]

REACTIONS (1)
  - DRUG INEFFECTIVE [None]
